FAERS Safety Report 4370581-5 (Version None)
Quarter: 2004Q2

REPORT INFORMATION
  Report Type: 
  Country: None (occurrence: None)
  Receive Date: 20040601
  Receipt Date: 20030509
  Transmission Date: 20050107
  Serious: Yes (Hospitalization)
  Sender: FDA-Public Use
  Company Number: S03-USA-02086-01

PATIENT
  Age: 25 Year
  Sex: Female

DRUGS (3)
  1. CERVIDIL [Suspect]
     Indication: PREGNANCY
     Dosage: 10 MG ONCE VG
     Route: 067
     Dates: start: 20030508, end: 20030508
  2. SUDAPED(PSEUDOEPHEDRINE HYDROCHLORIDE) [Concomitant]
  3. EPIDURAL [Concomitant]

REACTIONS (2)
  - FOETAL HEART RATE DECREASED [None]
  - UTERINE HYPERTONUS [None]
